FAERS Safety Report 10866014 (Version 1)
Quarter: 2015Q1

REPORT INFORMATION
  Report Type: Spontaneous
  Country: KR (occurrence: KR)
  Receive Date: 20150225
  Receipt Date: 20150225
  Transmission Date: 20150721
  Serious: Yes (Life-Threatening, Hospitalization)
  Sender: FDA-Public Use
  Company Number: PHHY2015KR021690

PATIENT
  Age: 66 Year
  Sex: Male
  Weight: 67.2 kg

DRUGS (5)
  1. CISATRACURIUM BESYLATE. [Suspect]
     Active Substance: CISATRACURIUM BESYLATE
     Indication: GENERAL ANAESTHESIA
     Dosage: 12 MG, UNK
     Route: 065
  2. REMIFENTANIL [Concomitant]
     Active Substance: REMIFENTANIL
     Indication: GENERAL ANAESTHESIA
     Dosage: 3 NG/ML, UNK
     Route: 041
  3. PROPOFOL. [Concomitant]
     Active Substance: PROPOFOL
     Indication: GENERAL ANAESTHESIA
     Dosage: 2 UG/ML, UNK
     Route: 041
  4. EREX//LIDOCAINE [Concomitant]
     Indication: GENERAL ANAESTHESIA
     Dosage: 20 MG, UNK
     Route: 042
  5. MIDAZOLAM [Concomitant]
     Active Substance: MIDAZOLAM\MIDAZOLAM HYDROCHLORIDE
     Indication: GENERAL ANAESTHESIA
     Dosage: 2 MG, UNK
     Route: 042

REACTIONS (12)
  - Myocardial infarction [Recovering/Resolving]
  - Coma [Recovering/Resolving]
  - Respiratory arrest [Recovering/Resolving]
  - Electrocardiogram ST segment depression [Recovering/Resolving]
  - Anaphylactic shock [Recovering/Resolving]
  - Acute coronary syndrome [Recovering/Resolving]
  - Kounis syndrome [Recovering/Resolving]
  - Circulatory collapse [Recovering/Resolving]
  - Hypotension [Recovering/Resolving]
  - Ventricular fibrillation [Recovering/Resolving]
  - Ventricular hypokinesia [Recovering/Resolving]
  - Bundle branch block right [Recovering/Resolving]
